FAERS Safety Report 8533170-4 (Version None)
Quarter: 2012Q3

REPORT INFORMATION
  Report Type: 
  Country: None (occurrence: None)
  Receive Date: 20120724
  Receipt Date: 20120709
  Transmission Date: 20120928
  Serious: Yes (Other)
  Sender: FDA-Public Use
  Company Number: US-CELGENEUS-163-50794-12072333

PATIENT
  Sex: Female

DRUGS (17)
  1. VITAMIN E [Concomitant]
     Dosage: .5 CAPSULE
     Route: 048
  2. COLACE [Concomitant]
     Route: 048
  3. ALLOPURINOL [Concomitant]
     Dosage: 300 MILLIGRAM
     Route: 048
  4. FUROSEMIDE [Concomitant]
     Dosage: 40 MILLIGRAM
     Route: 048
  5. CALCIUM 600 [Concomitant]
     Route: 048
  6. MEPHYTON [Concomitant]
     Dosage: 5 MILLIGRAM
     Route: 048
     Dates: start: 20120621
  7. METOCLOPRAMIDE [Concomitant]
     Indication: CONSTIPATION
     Dosage: 10 MILLIGRAM
     Route: 048
  8. POTASSIUM CHLORIDE [Concomitant]
     Dosage: 20 MILLIEQUIVALENTS
     Route: 048
  9. NPH INSULIN [Concomitant]
     Dosage: 20-34 UNITS
     Route: 058
  10. COMPAZINE [Concomitant]
     Indication: VOMITING
  11. COMPAZINE [Concomitant]
     Indication: NAUSEA
     Dosage: 10 MILLIGRAM
     Route: 048
  12. MIRALAX [Concomitant]
     Route: 048
  13. CYANOCOBALAMIN [Concomitant]
     Route: 048
  14. VITAMIN D [Concomitant]
     Route: 048
  15. VIDAZA [Suspect]
     Route: 065
  16. SENNA-MINT WAF [Concomitant]
     Route: 048
  17. DYAZIDE [Concomitant]
     Dosage: 37.5-25 MG
     Route: 048

REACTIONS (2)
  - THROMBOCYTOPENIA [None]
  - RETINAL HAEMORRHAGE [None]
